FAERS Safety Report 20143959 (Version 4)
Quarter: 2022Q1

REPORT INFORMATION
  Report Type: Spontaneous
  Country: JP (occurrence: JP)
  Receive Date: 20211203
  Receipt Date: 20220301
  Transmission Date: 20220424
  Serious: Yes (Hospitalization, Disabling, Other)
  Sender: FDA-Public Use
  Company Number: JP-ABBVIE-21K-087-4184103-00

PATIENT
  Age: 87 Year
  Sex: Male

DRUGS (15)
  1. SKYRIZI [Suspect]
     Active Substance: RISANKIZUMAB-RZAA
     Indication: Psoriatic arthropathy
     Dosage: 75 MG X 2/ONCE
     Route: 058
     Dates: start: 20210916
  2. ASPIRIN [Concomitant]
     Active Substance: ASPIRIN
     Indication: Product used for unknown indication
     Dates: start: 20211014
  3. GLIMEPIRIDE [Concomitant]
     Active Substance: GLIMEPIRIDE
     Indication: Product used for unknown indication
     Dates: start: 20211014
  4. LANSOPRAZOLE [Concomitant]
     Active Substance: LANSOPRAZOLE
     Indication: Product used for unknown indication
     Dates: start: 20211014
  5. AMLODIPINE BESYLATE [Concomitant]
     Active Substance: AMLODIPINE BESYLATE
     Indication: Product used for unknown indication
     Dates: start: 20211014
  6. WARFARIN POTASSIUM [Concomitant]
     Active Substance: WARFARIN POTASSIUM
     Indication: Product used for unknown indication
     Dates: start: 20211014
  7. ATORVASTATIN CALCIUM [Concomitant]
     Active Substance: ATORVASTATIN CALCIUM
     Indication: Product used for unknown indication
     Dates: start: 20211014
  8. NAFTOPIDIL [Concomitant]
     Active Substance: NAFTOPIDIL
     Indication: Product used for unknown indication
  9. MAGNESIUM OXIDE [Concomitant]
     Active Substance: MAGNESIUM OXIDE
     Indication: Product used for unknown indication
  10. SENNOSIDES [Concomitant]
     Active Substance: SENNOSIDES
     Indication: Product used for unknown indication
  11. LICORICE ROOT EXTRACT\RHUBARB [Concomitant]
     Active Substance: LICORICE ROOT EXTRACT\RHUBARB
     Indication: Product used for unknown indication
     Dosage: EXTRACT
  12. SUVOREXANT [Concomitant]
     Active Substance: SUVOREXANT
     Indication: Product used for unknown indication
     Dates: start: 20211014
  13. OLMESARTAN MEDOXOMIL [Concomitant]
     Active Substance: OLMESARTAN MEDOXOMIL
     Indication: Product used for unknown indication
     Dates: start: 20211014
  14. BETAMETHASONE BUTYRATE PROPIONATE [Concomitant]
     Active Substance: BETAMETHASONE BUTYRATE PROPIONATE
     Indication: Product used for unknown indication
     Dates: start: 20210805
  15. HEPARINOID [Concomitant]
     Indication: Product used for unknown indication

REACTIONS (1)
  - Cerebral infarction [Recovered/Resolved with Sequelae]

NARRATIVE: CASE EVENT DATE: 20211128
